FAERS Safety Report 7967649 (Version 11)
Quarter: 2013Q4

REPORT INFORMATION
  Report Type: Report from Study
  Country: DE (occurrence: DE)
  Receive Date: 20110531
  Receipt Date: 20131029
  Transmission Date: 20140711
  Serious: Yes (Death, Hospitalization)
  Sender: FDA-Public Use
  Company Number: DE-UCBSA-027036

PATIENT
  Age: 75 Year
  Sex: Female
  Weight: 58 kg

DRUGS (18)
  1. CIMZIA [Suspect]
     Indication: RHEUMATOID ARTHRITIS
     Dosage: NUMBER OF DOSES: 19
     Route: 058
     Dates: start: 20100212, end: 20110112
  2. CIMZIA [Suspect]
     Indication: RHEUMATOID ARTHRITIS
     Route: 058
     Dates: start: 20110131
  3. CIMZIA [Suspect]
     Indication: RHEUMATOID ARTHRITIS
     Route: 058
     Dates: start: 20110214, end: 20110303
  4. CIMZIA [Suspect]
     Indication: RHEUMATOID ARTHRITIS
     Route: 058
     Dates: start: 201103, end: 20110326
  5. LEFLUNOMIDE [Suspect]
     Indication: RHEUMATOID ARTHRITIS
     Dosage: 20
     Dates: start: 200105, end: 20110112
  6. LEFLUNOMIDE [Suspect]
     Indication: RHEUMATOID ARTHRITIS
     Dates: start: 2011, end: 20110303
  7. SYMBICORT TUR 160/4.5 MCG [Concomitant]
     Indication: CHRONIC OBSTRUCTIVE PULMONARY DISEASE
     Dosage: 200/6/4.91 MG
     Route: 045
  8. SYMBICORT TUR 160/4.5 MCG [Concomitant]
     Indication: ASTHMA
     Dosage: 200/6/4.91 MG
     Route: 045
  9. SPIRIVA [Concomitant]
     Indication: CHRONIC OBSTRUCTIVE PULMONARY DISEASE
     Route: 048
     Dates: end: 20110326
  10. HUMAN INSULIN [Concomitant]
     Indication: TYPE 2 DIABETES MELLITUS
     Dosage: 10 IE ONCE A DAY
     Route: 058
  11. HUMALOG READY TO USE PEN [Concomitant]
     Indication: TYPE 2 DIABETES MELLITUS
     Dosage: 32/10/16 IE
     Route: 058
     Dates: start: 199602, end: 20110326
  12. INNOLET [Concomitant]
     Indication: TYPE 2 DIABETES MELLITUS
     Route: 058
     Dates: start: 199802, end: 20110326
  13. METOCLOPRAMIDE DROPS [Concomitant]
     Indication: NAUSEA
     Dosage: 4.21/4/3.57  3X20/DAY
     Dates: start: 201102, end: 20110326
  14. DOSS [Concomitant]
     Indication: OSTEOPOROSIS
  15. ACTRAPHANE READY TO USE SYRINGE 30 INNOLET [Concomitant]
     Dosage: IU - DOSAGE UNSPECIFIED
     Route: 058
     Dates: start: 200602, end: 20110326
  16. RITUXIMAB [Concomitant]
     Dosage: 500 MG
     Dates: start: 20081105
  17. DICLO VOLTEREN DISPERSION [Concomitant]
     Indication: RHEUMATOID ARTHRITIS
     Dosage: ONCE DAILY
     Dates: start: 20110112, end: 20110121
  18. PANTOZOL [Concomitant]
     Indication: GASTRIC DISORDER
     Dates: start: 20110112, end: 20110121

REACTIONS (5)
  - Sepsis [Fatal]
  - Pneumonia [Recovered/Resolved]
  - Dilatation ventricular [Not Recovered/Not Resolved]
  - Liver abscess [Recovered/Resolved]
  - Renal failure acute [Recovered/Resolved]
